FAERS Safety Report 12142984 (Version 1)
Quarter: 2016Q1

REPORT INFORMATION
  Report Type: Spontaneous
  Country: US (occurrence: US)
  Receive Date: 20160303
  Receipt Date: 20160303
  Transmission Date: 20160526
  Serious: Yes (Other)
  Sender: FDA-Public Use
  Company Number: US-TEIKOKU PHARMA USA-TPU2015-00628

PATIENT
  Age: 59 Year
  Sex: Male
  Weight: 99.88 kg

DRUGS (3)
  1. LIDODERM [Suspect]
     Active Substance: LIDOCAINE
     Indication: ARTHRALGIA
     Route: 061
     Dates: start: 2010
  2. LIDODERM [Suspect]
     Active Substance: LIDOCAINE
     Dosage: 1 PATCH TO RIGHT SHOULDER DAILY FOR 12 HOURS; OCCASIONALLY USES 2 PATCHES
     Route: 061
     Dates: start: 20151009
  3. LIDODERM [Suspect]
     Active Substance: LIDOCAINE
     Indication: MUSCULOSKELETAL PAIN
     Route: 061
     Dates: start: 20130328

REACTIONS (2)
  - Drug ineffective for unapproved indication [Unknown]
  - Shoulder operation [Unknown]

NARRATIVE: CASE EVENT DATE: 201511
